FAERS Safety Report 5316020-9 (Version None)
Quarter: 2007Q2

REPORT INFORMATION
  Report Type: 
  Country: None (occurrence: None)
  Receive Date: 20070503
  Receipt Date: 20070501
  Transmission Date: 20071010
  Serious: Yes (Hospitalization)
  Sender: FDA-Public Use
  Company Number: JP-BAXTER-2007BH003910

PATIENT
  Age: 12 Month
  Sex: Male
  Weight: 9 kg

DRUGS (2)
  1. RECOMBINATE [Suspect]
     Indication: FACTOR VIII DEFICIENCY
     Route: 065
     Dates: start: 20060101, end: 20070401
  2. ADVATE [Suspect]
     Indication: FACTOR VIII DEFICIENCY
     Route: 065
     Dates: start: 20070401

REACTIONS (2)
  - DRUG INEFFECTIVE [None]
  - FACTOR VIII INHIBITION [None]
